FAERS Safety Report 24127216 (Version 1)
Quarter: 2024Q3

REPORT INFORMATION
  Report Type: Report from Study
  Country: US (occurrence: US)
  Receive Date: 20240723
  Receipt Date: 20240723
  Transmission Date: 20241017
  Serious: No
  Sender: VANDA PHARMACEUTICALS
  Company Number: US-VANDA PHARMACEUTICALS, INC-2023TASUS006450

PATIENT
  Sex: Male

DRUGS (4)
  1. HETLIOZ LQ [Suspect]
     Active Substance: TASIMELTEON
     Indication: Circadian rhythm sleep disorder
     Dosage: 3.5 MILLILITER, QHS
     Route: 048
     Dates: start: 20220824
  2. HETLIOZ LQ [Suspect]
     Active Substance: TASIMELTEON
     Dosage: 4 MILLILITER, QHS
     Route: 048
     Dates: start: 20220824
  3. FLUTICASONE [Concomitant]
     Active Substance: FLUTICASONE
     Indication: Product used for unknown indication
  4. MONTELUKAST [Concomitant]
     Active Substance: MONTELUKAST SODIUM
     Indication: Circadian rhythm sleep disorder

REACTIONS (4)
  - Sleep terror [Not Recovered/Not Resolved]
  - Insomnia [Not Recovered/Not Resolved]
  - Sleep talking [Unknown]
  - Product dose omission issue [Unknown]
